FAERS Safety Report 6879823-5 (Version None)
Quarter: 2010Q3

REPORT INFORMATION
  Report Type: 
  Country: None (occurrence: None)
  Receive Date: 20100728
  Receipt Date: 20100720
  Transmission Date: 20110219
  Serious: Yes (Hospitalization)
  Sender: FDA-Public Use
  Company Number: IT-ASTRAZENECA-2010SE33774

PATIENT
  Age: 65 Year
  Sex: Female

DRUGS (3)
  1. ZESTORETIC [Suspect]
     Indication: HYPERTENSION
     Dosage: 20+12.5 MG DAILY
     Route: 048
     Dates: start: 20050205, end: 20100714
  2. ISOPTIN [Suspect]
     Indication: HYPERTENSION
     Route: 048
     Dates: start: 20050205, end: 20100714
  3. TIMOPTOL [Concomitant]

REACTIONS (3)
  - HYPERKALAEMIA [None]
  - HYPOTENSION [None]
  - SHOCK [None]
